FAERS Safety Report 8611057-6 (Version None)
Quarter: 2012Q3

REPORT INFORMATION
  Report Type: 
  Country: None (occurrence: None)
  Receive Date: 20120822
  Receipt Date: 20120809
  Transmission Date: 20120928
  Serious: Yes (Life-Threatening, Hospitalization)
  Sender: FDA-Public Use
  Company Number: ES-INCYTE CORPORATION-2012IN001507

PATIENT
  Sex: Male
  Weight: 59 kg

DRUGS (7)
  1. FUROSEMIDE [Concomitant]
  2. ASPIRIN [Concomitant]
  3. DOLAC [Concomitant]
  4. ALLOPURINOL [Concomitant]
  5. CARDURA [Concomitant]
  6. PANTOPRAZOLE [Concomitant]
  7. INC424 [Suspect]
     Indication: MYELOFIBROSIS
     Dosage: UNK
     Dates: start: 20120502, end: 20120808

REACTIONS (1)
  - ANAEMIA [None]
